FAERS Safety Report 9482772 (Version 1)
Quarter: 2013Q3

REPORT INFORMATION
  Report Type: Spontaneous
  Country: CZ (occurrence: CZ)
  Receive Date: 20130828
  Receipt Date: 20130828
  Transmission Date: 20140515
  Serious: Yes (Hospitalization)
  Sender: FDA-Public Use
  Company Number: CZ-PFIZER INC-2013243701

PATIENT
  Age: 67 Year
  Sex: Male

DRUGS (18)
  1. LYRICA [Suspect]
     Dosage: 150 MG, 1-0-1 TBL
     Route: 048
  2. MONO MACK [Suspect]
     Dosage: 100 MG, 1X/DAY 1-0-0
     Route: 048
  3. TORVACARD [Suspect]
     Dosage: 20MG 0-0-2 TBL
     Route: 048
  4. VENLAFAXINE HYDROCHLORIDE [Suspect]
     Dosage: 150MG 1-1-0 TBL
     Route: 048
  5. LOZAP [Suspect]
     Dosage: 1-0-1 TBL
     Route: 048
  6. RECOXA [Suspect]
     Dosage: 15 MG, 1-0-0 TBL
     Route: 048
  7. LEPONEX [Suspect]
     Dosage: 25 MG, 1-0-2 TBL
     Route: 048
  8. SEROQUEL [Suspect]
     Dosage: 200 MG, 0-0-1 TBL
     Route: 048
  9. WELLBUTRIN [Suspect]
     Dosage: 150 MG, 1-0-1 TBL
     Route: 048
  10. VASOCARDIN [Suspect]
     Dosage: 50 MG, 1 -0-1 TBL
     Route: 048
  11. SIOFOR [Suspect]
     Dosage: 850 MG, 1-0-1 TBL
     Route: 048
  12. NAKOM MITE [Suspect]
     Dosage: 125MG 2-2-2-2 TBL
     Route: 048
  13. LEVODOPA-CARBIDOPA [Suspect]
     Dosage: 200MG/50MG 0-0-0-1 TBL AT 11 PM
     Route: 048
  14. MILGAMMA [Suspect]
     Dosage: 1-0-1
     Route: 048
  15. DICLOFENAC DUO ^PHARMAVIT^ [Suspect]
     Dosage: 1-0-1 TBL
     Route: 048
  16. DORSIFLEX [Suspect]
     Dosage: 200 MG, 1-0-1 TBL
     Route: 048
  17. ATARAX [Suspect]
     Dosage: 25 MG, 1-1-1 TBL
  18. HYPNOGEN [Suspect]
     Indication: INSOMNIA
     Dosage: 1 DF, AS NEEDED
     Route: 048

REACTIONS (3)
  - Delirium [Recovered/Resolved]
  - Fall [Recovered/Resolved]
  - Hypotension [Recovered/Resolved]
